FAERS Safety Report 6942933-8 (Version None)
Quarter: 2010Q3

REPORT INFORMATION
  Report Type: 
  Country: None (occurrence: None)
  Receive Date: 20100826
  Receipt Date: 20100817
  Transmission Date: 20110219
  Serious: Yes (Hospitalization)
  Sender: FDA-Public Use
  Company Number: PHHY2010BR54431

PATIENT
  Sex: Female

DRUGS (4)
  1. COMBIPATCH [Suspect]
     Indication: AMENORRHOEA
     Route: 062
  2. URBANYL [Concomitant]
     Dosage: 10 MG,
  3. GARDENAL [Concomitant]
     Dosage: 100 MG, UNK
  4. AMATO [Concomitant]
     Indication: EPILEPSY
     Dosage: TWO TABLETS DAILY
     Route: 048

REACTIONS (1)
  - EPILEPSY [None]
